FAERS Safety Report 5699263-4 (Version None)
Quarter: 2008Q2

REPORT INFORMATION
  Report Type: 
  Country: None (occurrence: None)
  Receive Date: 20080407
  Receipt Date: 20080407
  Transmission Date: 20081010
  Serious: Yes (Hospitalization)
  Sender: FDA-Public Use
  Company Number: None

PATIENT
  Sex: Female
  Weight: 54.8852 kg

DRUGS (2)
  1. CETUXIMAB BMS [Suspect]
     Indication: ADENOCARCINOMA
     Dosage: 400 MG/M2 WEEKLY IV
     Route: 042
     Dates: start: 20080325, end: 20080325
  2. DASATINIB 50MG BMS [Suspect]
     Indication: ADENOCARCINOMA
     Dosage: 150MG DAILY PO
     Route: 048
     Dates: start: 20080324, end: 20080325

REACTIONS (6)
  - ABDOMINAL PAIN [None]
  - CONSTIPATION [None]
  - DRUG INEFFECTIVE [None]
  - HEADACHE [None]
  - NAUSEA [None]
  - VOMITING [None]
